FAERS Safety Report 18612419 (Version 1)
Quarter: 2020Q4

REPORT INFORMATION
  Report Type: Spontaneous
  Country: DE (occurrence: DE)
  Receive Date: 20201214
  Receipt Date: 20201214
  Transmission Date: 20210114
  Serious: Yes (Other)
  Sender: FDA-Public Use
  Company Number: DE-MYLANLABS-2020M1101148

PATIENT
  Age: 48 Year
  Sex: Female

DRUGS (5)
  1. ESCITALOPRAM [Suspect]
     Active Substance: ESCITALOPRAM OXALATE
     Indication: PRODUCT USED FOR UNKNOWN INDICATION
     Dosage: UNK
     Route: 065
  2. TECFIDERA [Concomitant]
     Active Substance: DIMETHYL FUMARATE
     Dosage: UNK
     Route: 065
  3. DEKRISTOL [Concomitant]
     Active Substance: CHOLECALCIFEROL
     Dosage: UNK
     Route: 065
  4. ELIQUIS [Suspect]
     Active Substance: APIXABAN
     Indication: HYPERCOAGULATION
     Dosage: 10 MILLIGRAM, QD (5 MILLIGRAM, BID)
     Route: 048
  5. SATIVEX [Concomitant]
     Active Substance: NABIXIMOLS
     Dosage: UNK
     Route: 065

REACTIONS (4)
  - Vitamin D decreased [Unknown]
  - Oropharyngeal pain [Unknown]
  - Intentional product use issue [Unknown]
  - Multiple sclerosis relapse [Unknown]
